FAERS Safety Report 6804023-4 (Version None)
Quarter: 2010Q2

REPORT INFORMATION
  Report Type: 
  Country: None (occurrence: None)
  Receive Date: 20100628
  Receipt Date: 20070102
  Transmission Date: 20101027
  Serious: Yes (Hospitalization)
  Sender: FDA-Public Use
  Company Number: US-PFIZER INC-2007000876

PATIENT
  Age: 57 Year
  Sex: Female
  Weight: 95.7 kg

DRUGS (12)
  1. SUTENT [Suspect]
     Indication: RENAL CELL CARCINOMA
     Dosage: DAILY
     Route: 048
     Dates: start: 20061019, end: 20061123
  2. ALBUTEROL SULFATE [Concomitant]
  3. ALPRAZOLAM [Concomitant]
  4. ASPIRIN [Concomitant]
  5. ISOSORBIDE [Concomitant]
  6. LEVOTHYROXINE SODIUM [Concomitant]
  7. LOSARTAN POTASSIUM [Concomitant]
  8. METOPROLOL [Concomitant]
  9. OMEPRAZOLE [Concomitant]
  10. PROMETHAZINE [Concomitant]
  11. SIMVASTATIN [Concomitant]
  12. DIPHENHYDRAMINE [Concomitant]

REACTIONS (4)
  - ASTHENIA [None]
  - DECREASED APPETITE [None]
  - NAUSEA [None]
  - VOMITING [None]
